FAERS Safety Report 11917739 (Version 2)
Quarter: 2016Q2

REPORT INFORMATION
  Report Type: Spontaneous
  Country: US (occurrence: US)
  Receive Date: 20160114
  Receipt Date: 20160426
  Transmission Date: 20160815
  Serious: Yes (Other)
  Sender: FDA-Public Use
  Company Number: US-BAYER-2016-007874

PATIENT
  Age: 29 Year
  Sex: Female
  Weight: 71.2 kg

DRUGS (1)
  1. MIRENA [Suspect]
     Active Substance: LEVONORGESTREL
     Indication: CONTRACEPTION
     Dosage: 20 MCG/24HR, CONT
     Route: 015
     Dates: start: 20150127

REACTIONS (2)
  - Procedural haemorrhage [None]
  - Pelvic inflammatory disease [Not Recovered/Not Resolved]

NARRATIVE: CASE EVENT DATE: 20150127
